FAERS Safety Report 5718757-6 (Version None)
Quarter: 2008Q2

REPORT INFORMATION
  Report Type: 
  Country: None (occurrence: None)
  Receive Date: 20080423
  Receipt Date: 20080409
  Transmission Date: 20081010
  Serious: Yes (Hospitalization)
  Sender: FDA-Public Use
  Company Number: 2007BI013282

PATIENT
  Age: 30 Year
  Sex: Female

DRUGS (1)
  1. TYSABRI [Suspect]
     Indication: RELAPSING-REMITTING MULTIPLE SCLEROSIS
     Dosage: 300 MG; QM; IV
     Route: 042
     Dates: start: 20061220, end: 20070515

REACTIONS (8)
  - BLOOD FIBRINOGEN INCREASED [None]
  - DRUG INTOLERANCE [None]
  - IMMUNE SYSTEM DISORDER [None]
  - INFECTION SUSCEPTIBILITY INCREASED [None]
  - OPPORTUNISTIC INFECTION [None]
  - PNEUMONIA [None]
  - STAPHYLOCOCCAL SEPSIS [None]
  - URGE INCONTINENCE [None]
